FAERS Safety Report 10645157 (Version 2)
Quarter: 2015Q1

REPORT INFORMATION
  Report Type: Spontaneous
  Country: US (occurrence: US)
  Receive Date: 20141211
  Receipt Date: 20150326
  Transmission Date: 20150720
  Serious: No
  Sender: FDA-Public Use
  Company Number: US-BIOGENIDEC-2014BI128797

PATIENT

DRUGS (2)
  1. AVONEX [Suspect]
     Active Substance: INTERFERON BETA-1A
     Indication: PRODUCT USED FOR UNKNOWN INDICATION
     Route: 030
  2. AVONEX [Suspect]
     Active Substance: INTERFERON BETA-1A
     Indication: PRODUCT USED FOR UNKNOWN INDICATION
     Route: 030

REACTIONS (10)
  - Chest discomfort [Unknown]
  - Liver disorder [Unknown]
  - Peripheral swelling [Unknown]
  - Hypersensitivity [Unknown]
  - Headache [Unknown]
  - Injection site infection [Unknown]
  - Feeling hot [Unknown]
  - Adverse reaction [Unknown]
  - Erythema [Unknown]
  - Asthma [Unknown]
